FAERS Safety Report 4800396-2 (Version None)
Quarter: 2005Q4

REPORT INFORMATION
  Report Type: 
  Country: None (occurrence: None)
  Receive Date: 20051004
  Receipt Date: 20050919
  Transmission Date: 20060501
  Serious: Yes (Hospitalization)
  Sender: FDA-Public Use
  Company Number: 2005BH001808

PATIENT
  Age: 57 Year
  Sex: Male
  Weight: 90.2658 kg

DRUGS (4)
  1. DIANEAL [Suspect]
     Indication: RENAL FAILURE CHRONIC
     Dosage: 2.5 L; 4X A DAY; IP
     Route: 033
     Dates: start: 20040729
  2. RENAGEL [Concomitant]
  3. SODIUM BICARBONATE [Concomitant]
  4. QUININE SULFATE [Concomitant]

REACTIONS (2)
  - BLOOD SODIUM DECREASED [None]
  - HYPOKALAEMIA [None]
